FAERS Safety Report 6500357-1 (Version None)
Quarter: 2009Q4

REPORT INFORMATION
  Report Type: 
  Country: None (occurrence: None)
  Receive Date: 20091216
  Receipt Date: 20091205
  Transmission Date: 20100525
  Serious: Yes (Other)
  Sender: FDA-Public Use
  Company Number: CR-ELI_LILLY_AND_COMPANY-CR200907007047

PATIENT
  Age: 58 Year
  Sex: Female

DRUGS (5)
  1. DULOXETINE HYDROCHLORIDE [Suspect]
     Indication: MAJOR DEPRESSION
     Dosage: 30 MG, DAILY (1/D)
     Route: 065
     Dates: start: 20090710
  2. DULOXETINE HYDROCHLORIDE [Suspect]
     Dosage: 60 MG, DAILY (1/D)
     Route: 065
     Dates: start: 20090701, end: 20090701
  3. IMIPRAMINE [Concomitant]
     Dates: start: 20090601
  4. RISPOLUX [Concomitant]
     Indication: MAJOR DEPRESSION
     Dosage: 1 MG, DAILY (1/D)
     Route: 065
     Dates: start: 20090710
  5. EPIVAL [Concomitant]
     Indication: MAJOR DEPRESSION
     Dosage: 500 MG, DAILY (1/D)
     Dates: start: 20090710

REACTIONS (2)
  - DRUG INTERACTION [None]
  - HEPATITIS TOXIC [None]
